FAERS Safety Report 13717928 (Version 1)
Quarter: 2017Q3

REPORT INFORMATION
  Report Type: Other
  Country: AF (occurrence: US)
  Receive Date: 20170705
  Receipt Date: 20170705
  Transmission Date: 20171127
  Serious: No
  Sender: FDA-Public Use
  Company Number: US-LEADING PHARMA-2022912

PATIENT
  Age: 83 Year
  Sex: Female

DRUGS (1)
  1. HYDROCHLOROTHIAZIDE. [Suspect]
     Active Substance: HYDROCHLOROTHIAZIDE
     Indication: XANTHOGRANULOMA

REACTIONS (1)
  - Hypercalcaemia [Unknown]
